FAERS Safety Report 19570232 (Version 1)
Quarter: 2021Q3

REPORT INFORMATION
  Report Type: Report from Study
  Country: US (occurrence: US)
  Receive Date: 20210716
  Receipt Date: 20210716
  Transmission Date: 20211014
  Serious: Yes (Hospitalization, Other)
  Sender: FDA-Public Use
  Company Number: NVSC2021US154589

PATIENT
  Age: 72 Year
  Sex: Female

DRUGS (1)
  1. ENTRESTO [Suspect]
     Active Substance: SACUBITRIL\VALSARTAN
     Indication: PRODUCT USED FOR UNKNOWN INDICATION
     Dosage: UNK UNK, BID
     Route: 048
     Dates: start: 202006

REACTIONS (5)
  - Peripheral swelling [Unknown]
  - Gout [Unknown]
  - Cough [Unknown]
  - Cerebrovascular accident [Unknown]
  - Gait disturbance [Unknown]

NARRATIVE: CASE EVENT DATE: 202105
